FAERS Safety Report 15757144 (Version 2)
Quarter: 2019Q1

REPORT INFORMATION
  Report Type: Spontaneous
  Country: US (occurrence: US)
  Receive Date: 20181224
  Receipt Date: 20190104
  Transmission Date: 20190417
  Serious: No
  Sender: FDA-Public Use
  Company Number: US-JNJFOC-20181209908

PATIENT
  Sex: Female
  Weight: 60.33 kg

DRUGS (3)
  1. WOMENS ROGAINE UNSCENTED [Suspect]
     Active Substance: MINOXIDIL
     Route: 061
  2. WOMENS ROGAINE UNSCENTED [Suspect]
     Active Substance: MINOXIDIL
     Indication: ALOPECIA
     Dosage: HALF A CAP-FULL
     Route: 061
  3. ROGAINE FOR WOMEN^S REGULAR STRENGTH [Concomitant]
     Indication: ALOPECIA
     Route: 061

REACTIONS (2)
  - Alopecia [Recovered/Resolved]
  - Product quality issue [Unknown]
